FAERS Safety Report 13087628 (Version 1)
Quarter: 2017Q1

REPORT INFORMATION
  Report Type: Spontaneous
  Country: US (occurrence: US)
  Receive Date: 20170105
  Receipt Date: 20170105
  Transmission Date: 20170428
  Serious: No
  Sender: FDA-Public Use
  Company Number: US-ORION CORPORATION ORION PHARMA-ENTC2016-0617

PATIENT
  Sex: Female

DRUGS (1)
  1. CARBIDOPA, LEVODOPA AND ENTACAPONE TABLETS [Suspect]
     Active Substance: CARBIDOPA\ENTACAPONE\LEVODOPA
     Route: 065

REACTIONS (2)
  - Product quality issue [Unknown]
  - Medication residue present [Unknown]
